FAERS Safety Report 13909945 (Version 1)
Quarter: 2017Q3

REPORT INFORMATION
  Report Type: Report from Study
  Country: US (occurrence: US)
  Receive Date: 20170828
  Receipt Date: 20170828
  Transmission Date: 20171127
  Serious: Yes (Other)
  Sender: FDA-Public Use
  Company Number: US-CIPLA LTD.-2017US15197

PATIENT

DRUGS (2)
  1. CARBOPLATIN. [Suspect]
     Active Substance: CARBOPLATIN
     Indication: BREAST CANCER METASTATIC
     Dosage: UNK, AUC OF 5
     Route: 042
  2. VELIPARIB [Suspect]
     Active Substance: VELIPARIB
     Indication: BREAST CANCER METASTATIC
     Dosage: 200 MG, BID
     Route: 048

REACTIONS (2)
  - Thrombocytopenia [Unknown]
  - Neutrophil count abnormal [Unknown]
